FAERS Safety Report 19606937 (Version 5)
Quarter: 2023Q2

REPORT INFORMATION
  Report Type: Spontaneous
  Country: JP (occurrence: JP)
  Receive Date: 20210725
  Receipt Date: 20230428
  Transmission Date: 20230722
  Serious: Yes (Disabling)
  Sender: FDA-Public Use
  Company Number: JP-MSD-M2021-02744

PATIENT
  Age: 70 Year
  Sex: Male

DRUGS (1)
  1. KEYTRUDA [Suspect]
     Active Substance: PEMBROLIZUMAB
     Indication: Bladder transitional cell carcinoma
     Dosage: 200 MILLIGRAM, Q3W
     Route: 041
     Dates: start: 202002, end: 202008

REACTIONS (3)
  - Onychomadesis [Not Recovered/Not Resolved]
  - Paronychia [Unknown]
  - Skin erosion [Unknown]

NARRATIVE: CASE EVENT DATE: 20200101
